FAERS Safety Report 23360863 (Version 2)
Quarter: 2024Q1

REPORT INFORMATION
  Report Type: Spontaneous
  Country: US (occurrence: US)
  Receive Date: 20240103
  Receipt Date: 20240201
  Transmission Date: 20240410
  Serious: No
  Sender: FDA-Public Use
  Company Number: US-PFIZER INC-202300453010

PATIENT
  Age: 72 Year
  Sex: Female
  Weight: 68.027 kg

DRUGS (3)
  1. PAXLOVID [Suspect]
     Active Substance: NIRMATRELVIR\RITONAVIR
     Indication: COVID-19 treatment
     Dosage: 250 MG (150 MG NIRMATRELVIR + 100 MG RITONAVIR), 2X/DAY
     Route: 048
     Dates: start: 20231207, end: 20231211
  2. AROMASIN [Concomitant]
     Active Substance: EXEMESTANE
     Indication: Breast cancer
     Dosage: UNK
     Route: 048
     Dates: start: 20220728, end: 20231202
  3. ATORVASTATIN [Concomitant]
     Active Substance: ATORVASTATIN
     Indication: Blood cholesterol increased
     Dosage: 5 MG, DAILY
     Route: 048
     Dates: start: 20201228, end: 20231206

REACTIONS (1)
  - Therapeutic product effect incomplete [Recovered/Resolved with Sequelae]

NARRATIVE: CASE EVENT DATE: 20231212
